FAERS Safety Report 4811796-9 (Version None)
Quarter: 2005Q4

REPORT INFORMATION
  Report Type: 
  Country: None (occurrence: None)
  Receive Date: 20051028
  Receipt Date: 20051002
  Transmission Date: 20060501
  Serious: Yes (Life-Threatening, Hospitalization)
  Sender: FDA-Public Use
  Company Number: DE-KINGPHARMUSA00001-K200501339

PATIENT
  Age: 59 Year
  Sex: Male
  Weight: 98 kg

DRUGS (3)
  1. ALTACE [Suspect]
     Indication: HYPERTENSION
     Dosage: 5 MG, QD
  2. HYDROCHLOROTHIAZIDE [Suspect]
     Indication: HYPERTENSION
     Dosage: 12.5 MG, QD
  3. SPIRONOLACTONE [Suspect]
     Indication: HYPERTENSION
     Dosage: 25 MG, QD

REACTIONS (27)
  - BENIGN PROSTATIC HYPERPLASIA [None]
  - BLOOD CREATININE INCREASED [None]
  - BLOOD PARATHYROID HORMONE INCREASED [None]
  - BLOOD PHOSPHORUS INCREASED [None]
  - BLOOD PRESSURE INCREASED [None]
  - BLOOD UREA INCREASED [None]
  - BLOOD URIC ACID INCREASED [None]
  - BRADYCARDIA [None]
  - CREATININE RENAL CLEARANCE DECREASED [None]
  - DEHYDRATION [None]
  - DEPRESSION SUICIDAL [None]
  - ELECTROCARDIOGRAM T WAVE AMPLITUDE INCREASED [None]
  - GENERAL NUTRITION DISORDER [None]
  - GENERAL PHYSICAL CONDITION ABNORMAL [None]
  - HYPERKALAEMIA [None]
  - HYPOCALCAEMIA [None]
  - LEUKOCYTOSIS [None]
  - METABOLIC ACIDOSIS [None]
  - NAUSEA [None]
  - NORMOCHROMIC NORMOCYTIC ANAEMIA [None]
  - OLIGURIA [None]
  - PALLOR [None]
  - PROSTATIC SPECIFIC ANTIGEN INCREASED [None]
  - PSYCHOMOTOR RETARDATION [None]
  - RENAL FAILURE ACUTE [None]
  - RESPIRATORY RATE INCREASED [None]
  - SKIN TURGOR DECREASED [None]
